FAERS Safety Report 4522196-3 (Version None)
Quarter: 2004Q4

REPORT INFORMATION
  Report Type: 
  Country: None (occurrence: None)
  Receive Date: 20041207
  Receipt Date: 20041119
  Transmission Date: 20050328
  Serious: Yes (Other)
  Sender: FDA-Public Use
  Company Number: USA041184287

PATIENT
  Age: 65 Year
  Sex: Female

DRUGS (2)
  1. XIGRIS [Suspect]
     Dates: start: 20041114, end: 20041118
  2. ZOSYN [Concomitant]

REACTIONS (3)
  - PO2 DECREASED [None]
  - PULMONARY ARTERIAL WEDGE PRESSURE DECREASED [None]
  - RESPIRATORY ACIDOSIS [None]
